FAERS Safety Report 4484861-6 (Version None)
Quarter: 2004Q3

REPORT INFORMATION
  Report Type: 
  Country: None (occurrence: None)
  Receive Date: 20040921
  Receipt Date: 20030913
  Transmission Date: 20050211
  Serious: Yes (Hospitalization)
  Sender: FDA-Public Use
  Company Number: 163-20785-03090446 (0)

PATIENT
  Age: 69 Year
  Sex: Male
  Weight: 74.8435 kg

DRUGS (4)
  1. THALOMID [Suspect]
     Indication: MULTIPLE MYELOMA
     Dosage: 50 MG, QID, ORAL
     Route: 048
     Dates: start: 20020715
  2. SPIRONOLACTONE [Concomitant]
  3. ALLOPURINOL [Concomitant]
  4. AGGRENOX [Concomitant]

REACTIONS (1)
  - SYNCOPE [None]
